FAERS Safety Report 15983087 (Version 1)
Quarter: 2019Q1

REPORT INFORMATION
  Report Type: Spontaneous
  Country: US (occurrence: US)
  Receive Date: 20190213
  Receipt Date: 20190213
  Transmission Date: 20190418
  Serious: Yes (Life-Threatening, Hospitalization, Disabling)
  Sender: FDA-Public Use
  Company Number: None

PATIENT
  Age: 64 Year
  Sex: Male
  Weight: 80.74 kg

DRUGS (10)
  1. POTASSIUM [Concomitant]
     Active Substance: POTASSIUM
  2. GOIT BERRIES [Concomitant]
  3. SERZONE [Suspect]
     Active Substance: NEFAZODONE HYDROCHLORIDE
     Indication: PRODUCT USED FOR UNKNOWN INDICATION
  4. FLAXSEED [Concomitant]
     Active Substance: FLAX SEED
  5. COD LIVER OIL [Concomitant]
     Active Substance: COD LIVER OIL
  6. MSM [Concomitant]
     Active Substance: DIMETHYL SULFONE
  7. GARLIC OIL [Concomitant]
     Active Substance: GARLIC OIL
  8. WEST WHEAT GRASS [Concomitant]
     Active Substance: PASCOPYRUM SMITHII POLLEN
  9. ASPIRIN. [Concomitant]
     Active Substance: ASPIRIN
  10. LISINOPRIL. [Concomitant]
     Active Substance: LISINOPRIL

REACTIONS (1)
  - Liver disorder [None]
